FAERS Safety Report 9961651 (Version 4)
Quarter: 2014Q3

REPORT INFORMATION
  Report Type: Spontaneous
  Country: US (occurrence: US)
  Receive Date: 20140305
  Receipt Date: 20140725
  Transmission Date: 20150326
  Serious: Yes (Hospitalization, Other)
  Sender: FDA-Public Use
  Company Number: US-BAYER-2012-022974

PATIENT
  Age: 29 Year
  Sex: Female
  Weight: 108.84 kg

DRUGS (12)
  1. VICODIN [Concomitant]
     Active Substance: ACETAMINOPHEN\HYDROCODONE BITARTRATE
  2. MIRENA [Suspect]
     Active Substance: LEVONORGESTREL
     Indication: CONTRACEPTION
     Dosage: 20 MCG/24HR, CONT
     Route: 015
     Dates: start: 20071128, end: 20120130
  3. ALLEGRA-D 12 HOUR [Concomitant]
     Dosage: 60/120 MG, QD
  4. REGLAN [Concomitant]
     Active Substance: METOCLOPRAMIDE HYDROCHLORIDE
     Indication: NAUSEA
  5. DILAUDID [Concomitant]
     Active Substance: HYDROMORPHONE HYDROCHLORIDE
     Indication: PAIN
  6. MIRENA [Suspect]
     Active Substance: LEVONORGESTREL
     Indication: MENORRHAGIA
  7. ALBUTEROL. [Concomitant]
     Active Substance: ALBUTEROL
     Indication: ASTHMA
     Dosage: 90 ?G, Q 4 HOURS PRN
     Dates: start: 1990
  8. THEOPHYLLINE [Concomitant]
     Active Substance: THEOPHYLLINE
     Indication: ASTHMA
     Dosage: UNK
     Dates: start: 1990
  9. APRI [Concomitant]
     Active Substance: DESOGESTREL\ETHINYL ESTRADIOL
     Indication: CONTRACEPTION
     Dosage: UNK
     Dates: start: 2010
  10. MORPHINE [Concomitant]
     Active Substance: MORPHINE
  11. TYLENOL [Concomitant]
     Active Substance: ACETAMINOPHEN
  12. SYMBICORT [Concomitant]
     Active Substance: BUDESONIDE\FORMOTEROL FUMARATE DIHYDRATE
     Indication: ASTHMA
     Dosage: UNK UNK, BID
     Dates: start: 2010

REACTIONS (19)
  - Anxiety [None]
  - Ovarian atrophy [None]
  - Pelvic pain [None]
  - Uterine mass [None]
  - Hepatic adenoma [None]
  - Abdominal pain [None]
  - Pain [None]
  - Depression [None]
  - Emotional distress [None]
  - Uterine scar [None]
  - Intra-abdominal haemorrhage [None]
  - Peritonitis [None]
  - Infertility female [None]
  - Dyspareunia [None]
  - Uterine perforation [None]
  - Endometriosis [None]
  - Uterine haemorrhage [None]
  - Injury [None]
  - Device issue [None]

NARRATIVE: CASE EVENT DATE: 2012
